FAERS Safety Report 5529662-2 (Version None)
Quarter: 2007Q4

REPORT INFORMATION
  Report Type: 
  Country: None (occurrence: None)
  Receive Date: 20071129
  Receipt Date: 20071119
  Transmission Date: 20080405
  Serious: Yes (Other)
  Sender: FDA-Public Use
  Company Number: FR-PFIZER INC-2007097672

PATIENT
  Sex: Female

DRUGS (2)
  1. LYRICA [Suspect]
     Indication: FACIAL NEURALGIA
     Dosage: DAILY DOSE:25MG
  2. DEROXAT [Concomitant]

REACTIONS (1)
  - MOBILITY DECREASED [None]
